FAERS Safety Report 14102437 (Version 2)
Quarter: 2019Q2

REPORT INFORMATION
  Report Type: Spontaneous
  Country: US (occurrence: US)
  Receive Date: 20171018
  Receipt Date: 20190402
  Transmission Date: 20190711
  Serious: Yes (Disabling)
  Sender: FDA-Public Use
  Company Number: US-PFIZER INC-2017443268

PATIENT
  Age: 75 Year
  Sex: Female

DRUGS (1)
  1. ARTHROTEC [Suspect]
     Active Substance: DICLOFENAC SODIUM\MISOPROSTOL
     Indication: COSTOCHONDRITIS
     Dosage: UNK [2/DAY]

REACTIONS (2)
  - Product use in unapproved indication [Unknown]
  - Road traffic accident [Unknown]
